FAERS Safety Report 6413471-6 (Version None)
Quarter: 2009Q4

REPORT INFORMATION
  Report Type: 
  Country: None (occurrence: None)
  Receive Date: 20091026
  Receipt Date: 20091016
  Transmission Date: 20100525
  Serious: Yes (Hospitalization, Other)
  Sender: FDA-Public Use
  Company Number: JP-ASTRAZENECA-2009SE18298

PATIENT
  Age: 32 Year
  Sex: Female

DRUGS (1)
  1. FOSCAVIR [Suspect]
     Indication: CORD BLOOD TRANSPLANT THERAPY
     Dosage: THE SINGLE DOSE WAS ADJUSTED BETWEEN 62.5ML AND 150 ML TWO TIMES A DAY
     Route: 042
     Dates: start: 20090928

REACTIONS (3)
  - HYPOCALCAEMIA [None]
  - NAUSEA [None]
  - RENAL DISORDER [None]
